FAERS Safety Report 5104430-4 (Version None)
Quarter: 2006Q3

REPORT INFORMATION
  Report Type: 
  Country: None (occurrence: None)
  Receive Date: 20060731
  Receipt Date: 20060206
  Transmission Date: 20061208
  Serious: Yes (Hospitalization)
  Sender: FDA-Public Use
  Company Number: US-JNJFOC-20060102311

PATIENT
  Age: 50 Year
  Sex: Female
  Weight: 73.0291 kg

DRUGS (1)
  1. RISPERDAL CONSTA [Suspect]
     Indication: DRUG USE FOR UNKNOWN INDICATION
     Dosage: 50 MG, 1 IN 2 WEEK, INTRA-MUSCULAR
     Route: 030

REACTIONS (2)
  - DRUG ADMINISTRATION ERROR [None]
  - MENTAL DISORDER [None]
